FAERS Safety Report 22952788 (Version 2)
Quarter: 2023Q4

REPORT INFORMATION
  Report Type: Spontaneous
  Country: NZ (occurrence: NZ)
  Receive Date: 20230918
  Receipt Date: 20231006
  Transmission Date: 20240109
  Serious: Yes (Life-Threatening, Hospitalization)
  Sender: FDA-Public Use
  Company Number: NZ-BEH-2023163056

PATIENT
  Sex: Male

DRUGS (8)
  1. HUMAN IMMUNOGLOBULIN G [Suspect]
     Active Substance: HUMAN IMMUNOGLOBULIN G
     Indication: Stiff person syndrome
     Dosage: 160 GRAM, EVERY 6 WEEKS
     Route: 042
  2. HUMAN IMMUNOGLOBULIN G [Suspect]
     Active Substance: HUMAN IMMUNOGLOBULIN G
     Dosage: 80 GRAM [4*20G VIALS]
     Route: 042
     Dates: start: 20230726, end: 20230726
  3. HUMAN IMMUNOGLOBULIN G [Suspect]
     Active Substance: HUMAN IMMUNOGLOBULIN G
     Dosage: 80 GRAM [4*20G VIALS]
     Route: 042
     Dates: start: 20230822, end: 20230822
  4. HUMAN IMMUNOGLOBULIN G [Suspect]
     Active Substance: HUMAN IMMUNOGLOBULIN G
     Dosage: 10 GRAM [1*10G VIAL]
     Route: 042
     Dates: start: 20230822, end: 20230822
  5. CLONAZEPAM [Concomitant]
     Active Substance: CLONAZEPAM
  6. ASCORBIC ACID [Concomitant]
     Active Substance: ASCORBIC ACID
  7. CHOLECALCIFEROL [Concomitant]
     Active Substance: CHOLECALCIFEROL
  8. BACLOFEN [Concomitant]
     Active Substance: BACLOFEN

REACTIONS (7)
  - Autoimmune haemolytic anaemia [Not Recovered/Not Resolved]
  - Jaundice [Not Recovered/Not Resolved]
  - Chromaturia [Not Recovered/Not Resolved]
  - Weight decreased [Not Recovered/Not Resolved]
  - Cold agglutinins positive [Not Recovered/Not Resolved]
  - Coombs indirect test positive [Not Recovered/Not Resolved]
  - Coombs direct test positive [Not Recovered/Not Resolved]
